FAERS Safety Report 12014990 (Version 2)
Quarter: 2017Q2

REPORT INFORMATION
  Report Type: Spontaneous
  Country: US (occurrence: US)
  Receive Date: 20160205
  Receipt Date: 20170629
  Transmission Date: 20170829
  Serious: No
  Sender: FDA-Public Use
  Company Number: US-JNJFOC-20160117908

PATIENT
  Sex: Female
  Weight: 102.06 kg

DRUGS (2)
  1. KETOCONAZOLE. [Suspect]
     Active Substance: KETOCONAZOLE
     Indication: ALOPECIA
     Route: 061
     Dates: end: 2016
  2. NAPROXEN. [Concomitant]
     Active Substance: NAPROXEN
     Indication: ARTHRITIS
     Route: 065

REACTIONS (4)
  - Nervousness [Unknown]
  - Depression [Unknown]
  - Alopecia [Not Recovered/Not Resolved]
  - Drug ineffective [Unknown]
